FAERS Safety Report 4634155-0 (Version None)
Quarter: 2005Q1

REPORT INFORMATION
  Report Type: 
  Country: None (occurrence: None)
  Receive Date: 20050325
  Receipt Date: 20050104
  Transmission Date: 20050727
  Serious: No
  Sender: FDA-Public Use
  Company Number: USA041285989

PATIENT
  Age: 70 Year
  Sex: Female

DRUGS (9)
  1. FORTEO [Suspect]
     Indication: OSTEOPOROSIS
     Dosage: 20 UG/1 DAY
     Dates: start: 20040915
  2. CALCIUM WITH VITAMIN D [Concomitant]
  3. MULTIVITAMIN [Concomitant]
  4. BENTYL [Concomitant]
  5. ASPIRIN [Concomitant]
  6. OSCAL (CALCIUM CARBONATE) [Concomitant]
  7. ATENOLOL [Concomitant]
  8. AMITRIPTYLINE HCL TAB [Concomitant]
  9. MILK OF MAGNESIA [Concomitant]

REACTIONS (4)
  - DIZZINESS [None]
  - NAUSEA [None]
  - RETCHING [None]
  - STOMACH DISCOMFORT [None]
